FAERS Safety Report 5410841-X (Version None)
Quarter: 2007Q3

REPORT INFORMATION
  Report Type: 
  Country: None (occurrence: None)
  Receive Date: 20070810
  Receipt Date: 20070727
  Transmission Date: 20080115
  Serious: Yes (Hospitalization)
  Sender: FDA-Public Use
  Company Number: US-JNJFOC-20070800013

PATIENT
  Sex: Female
  Weight: 58.97 kg

DRUGS (9)
  1. FENTANYL TRANSDERMAL SYSTEM [Suspect]
     Indication: PAIN
     Route: 062
  2. FENTANYL [Suspect]
     Indication: PAIN
     Route: 062
  3. PROMETHAZINE [Concomitant]
     Route: 048
  4. ZANAFLEX [Concomitant]
     Indication: MUSCLE SPASTICITY
     Route: 048
  5. XANAX [Concomitant]
     Indication: MUSCLE SPASTICITY
     Route: 048
  6. ADVAIR DISKUS 100/50 [Concomitant]
     Indication: MULTIPLE ALLERGIES
     Dosage: 250/50MG
     Route: 055
  7. MORPHINE PUMP [Concomitant]
     Indication: PAIN
     Route: 042
  8. CYMBALTA [Concomitant]
     Indication: PAIN
     Route: 048
  9. CYMBALTA [Concomitant]
     Indication: DEPRESSION
     Route: 048

REACTIONS (2)
  - INTERVERTEBRAL DISC PROTRUSION [None]
  - WRONG TECHNIQUE IN DRUG USAGE PROCESS [None]
